FAERS Safety Report 19899487 (Version 3)
Quarter: 2022Q1

REPORT INFORMATION
  Report Type: Report from Study
  Country: FR (occurrence: None)
  Receive Date: 20210929
  Receipt Date: 20220325
  Transmission Date: 20220423
  Serious: Yes (Death, Hospitalization)
  Sender: FDA-Public Use
  Company Number: FR-ROCHE-2922922

PATIENT
  Age: 42 Year
  Sex: Female

DRUGS (12)
  1. ATEZOLIZUMAB [Suspect]
     Active Substance: ATEZOLIZUMAB
     Indication: Cervix carcinoma
     Dosage: SOLUTION A DILUER POUR PERFUSION
     Route: 041
     Dates: start: 20210726, end: 20210823
  2. ACETAMINOPHEN [Concomitant]
     Active Substance: ACETAMINOPHEN
     Dates: start: 20210802, end: 20210816
  3. INNOHEP [Concomitant]
     Active Substance: TINZAPARIN SODIUM
     Dosage: 14 000 U.I. ANTI XA/0,7 ML, SOLUTION
     Dates: start: 20210906
  4. TRAMADOL HYDROCHLORIDE [Concomitant]
     Active Substance: TRAMADOL HYDROCHLORIDE
     Dates: start: 20210906
  5. PHLOROGLUCINOL [Concomitant]
     Active Substance: PHLOROGLUCINOL
     Dates: start: 20210823
  6. XANAX [Concomitant]
     Active Substance: ALPRAZOLAM
     Dates: start: 20210830
  7. TRANEXAMIC ACID [Concomitant]
     Active Substance: TRANEXAMIC ACID
     Dates: start: 20210906
  8. ZOLPIDEM TARTRATE [Concomitant]
     Active Substance: ZOLPIDEM TARTRATE
     Dates: start: 20210906
  9. METHYLPREDNISOLONE [Concomitant]
     Active Substance: METHYLPREDNISOLONE
     Dates: start: 20210915
  10. TRAMADOL [Concomitant]
     Active Substance: TRAMADOL
     Dates: start: 20210906
  11. ACUPAN [Concomitant]
     Active Substance: NEFOPAM HYDROCHLORIDE
     Dates: start: 20210823, end: 20210830
  12. TRAMADOL HYDROCHLORIDE [Concomitant]
     Active Substance: TRAMADOL HYDROCHLORIDE
     Dosage: 50 MG, 300 MILLIGRAM PER A DAY FOR PAIN FROM
     Dates: start: 20210830

REACTIONS (3)
  - Acute kidney injury [Recovered/Resolved with Sequelae]
  - Disease progression [Fatal]
  - Pyelonephritis [Recovered/Resolved]

NARRATIVE: CASE EVENT DATE: 20210913
